FAERS Safety Report 5162776-8 (Version None)
Quarter: 2006Q4

REPORT INFORMATION
  Report Type: 
  Country: None (occurrence: None)
  Receive Date: 20061201
  Receipt Date: 20061120
  Transmission Date: 20070319
  Serious: Yes (Other)
  Sender: FDA-Public Use
  Company Number: AT-ELI_LILLY_AND_COMPANY-AT200611003898

PATIENT
  Age: 11 Year
  Sex: Male

DRUGS (2)
  1. STRATTERA [Suspect]
     Indication: ATTENTION DEFICIT/HYPERACTIVITY DISORDER
     Dosage: 10 MG, UNK
     Route: 048
     Dates: start: 20060903, end: 20060910
  2. DEPAKENE [Concomitant]
     Indication: EPILEPSY
     Dosage: 300 MG, DAILY (1/D)
     Route: 048

REACTIONS (2)
  - AGGRESSION [None]
  - RESTLESSNESS [None]
